FAERS Safety Report 10177170 (Version 1)
Quarter: 2014Q2

REPORT INFORMATION
  Report Type: Spontaneous
  Country: US (occurrence: None)
  Receive Date: 20140416
  Receipt Date: 20140416
  Transmission Date: 20141212
  Serious: Yes (Hospitalization, Other)
  Sender: FDA-Public Use
  Company Number: 163-POMAL-14011684

PATIENT
  Age: 62 Year
  Sex: Female
  Weight: 99.8 kg

DRUGS (1)
  1. POMALYST (POMALIDOMIDE) (2 MILLIGRAM, CAPSULES) [Suspect]
     Indication: PLASMA CELL MYELOMA
     Dosage: 2 MG, 1 IN 1 D, PO
     Route: 048
     Dates: start: 20130417

REACTIONS (4)
  - Atrial fibrillation [None]
  - Dyspnoea [None]
  - Anaemia [None]
  - Fatigue [None]
